FAERS Safety Report 20089843 (Version 1)
Quarter: 2021Q4

REPORT INFORMATION
  Report Type: Other
  Country: UA (occurrence: UA)
  Receive Date: 20211119
  Receipt Date: 20211119
  Transmission Date: 20220303
  Serious: Yes (Other)
  Sender: FDA-Public Use
  Company Number: UA-002147023-NVSC2021UA255504

PATIENT

DRUGS (2)
  1. LUCENTIS [Suspect]
     Active Substance: RANIBIZUMAB
     Indication: Vitreous haemorrhage
     Dosage: 0.5 MG, 6 MONTHS
     Route: 031
  2. LUCENTIS [Suspect]
     Active Substance: RANIBIZUMAB
     Indication: Diabetic retinopathy

REACTIONS (2)
  - Vitreous haemorrhage [Unknown]
  - Off label use [Unknown]
